FAERS Safety Report 6648284-3 (Version None)
Quarter: 2010Q1

REPORT INFORMATION
  Report Type: 
  Country: None (occurrence: None)
  Receive Date: 20100324
  Receipt Date: 20100315
  Transmission Date: 20100710
  Serious: Yes (Hospitalization)
  Sender: FDA-Public Use
  Company Number: TR-TYCO HEALTHCARE/MALLINCKRODT-T201000820

PATIENT
  Age: 5 Year
  Sex: Male
  Weight: 17 kg

DRUGS (6)
  1. OPTIRAY 350 [Suspect]
     Indication: ANGIOGRAM
     Dosage: UNK, SINGLE
     Route: 013
  2. MIDAZOLAM HCL [Concomitant]
     Indication: ANAESTHESIA
     Dosage: 1.5 MG
  3. ATROPINE [Concomitant]
     Indication: ANAESTHESIA
     Dosage: 0.125 MG, SINGLE
  4. KETALAR [Concomitant]
     Indication: ANAESTHESIA
     Dosage: 20 MG, SINGLE
  5. PROPOFOL [Concomitant]
     Indication: ANAESTHESIA
     Dosage: 1 MG/KG/H
  6. FENTANYL [Concomitant]
     Indication: ANAESTHESIA
     Dosage: 1 ?G/KG/HR

REACTIONS (2)
  - ANAPHYLACTIC REACTION [None]
  - ANGIOEDEMA [None]
